FAERS Safety Report 6183506-7 (Version None)
Quarter: 2009Q2

REPORT INFORMATION
  Report Type: 
  Country: None (occurrence: None)
  Receive Date: 20090506
  Receipt Date: 20090427
  Transmission Date: 20091009
  Serious: Yes (Other)
  Sender: FDA-Public Use
  Company Number: CHPA2009US10617

PATIENT
  Sex: Female

DRUGS (1)
  1. BENEFIBER FIBER SUPP VIT B + FOLIC ACID (WHEAT DEXTRIN) CAPLET [Suspect]
     Indication: DIARRHOEA
     Dosage: 6 DF, QD, ORAL
     Route: 048
     Dates: start: 20080101

REACTIONS (2)
  - ABNORMAL FAECES [None]
  - GASTROINTESTINAL SURGERY [None]
